FAERS Safety Report 4314057-X (Version None)
Quarter: 2004Q1

REPORT INFORMATION
  Report Type: 
  Country: None (occurrence: None)
  Receive Date: 20040308
  Receipt Date: 20040308
  Transmission Date: 20041129
  Serious: No
  Sender: FDA-Public Use
  Company Number: None

PATIENT
  Sex: Male
  Weight: 69 kg

DRUGS (6)
  1. RISPERIDONE [Suspect]
     Indication: DEPRESSION
     Dosage: 1 MG HS ORAL
     Route: 048
     Dates: start: 20031002, end: 20031116
  2. QUETIAPINE 100MG TAB [Suspect]
     Indication: DEPRESSION
     Dosage: 50 MG HS ORAL
     Route: 048
     Dates: start: 20031119, end: 20031215
  3. AUGMENTIN [Concomitant]
  4. VICODIN [Concomitant]
  5. CITALOPRAM [Concomitant]
  6. SERTRALINE HCL [Concomitant]

REACTIONS (5)
  - ALCOHOL USE [None]
  - DRUG ABUSER [None]
  - OVERDOSE [None]
  - PRIAPISM [None]
  - TREATMENT NONCOMPLIANCE [None]
